FAERS Safety Report 17407654 (Version 2)
Quarter: 2020Q1

REPORT INFORMATION
  Report Type: Spontaneous
  Country: US (occurrence: US)
  Receive Date: 20200212
  Receipt Date: 20200321
  Transmission Date: 20200409
  Serious: Yes (Hospitalization)
  Sender: FDA-Public Use
  Company Number: NVSC2020US036754

PATIENT
  Age: 49 Year
  Sex: Female

DRUGS (2)
  1. PREDNISONE. [Suspect]
     Active Substance: PREDNISONE
     Indication: IDIOPATHIC ORBITAL INFLAMMATION
     Dosage: 80 MG, QD
     Route: 048
  2. PREDNISONE. [Suspect]
     Active Substance: PREDNISONE
     Dosage: 40 MG, QD
     Route: 048

REACTIONS (6)
  - Eye pain [Recovering/Resolving]
  - Exophthalmos [Recovering/Resolving]
  - Product use in unapproved indication [Unknown]
  - Idiopathic orbital inflammation [Recovering/Resolving]
  - Headache [Recovering/Resolving]
  - Swelling of eyelid [Recovering/Resolving]
